FAERS Safety Report 25531404 (Version 2)
Quarter: 2025Q4

REPORT INFORMATION
  Report Type: Report from Study
  Country: EU (occurrence: EU)
  Receive Date: 20250708
  Receipt Date: 20251202
  Transmission Date: 20260117
  Serious: Yes (Congenital Anomaly)
  Sender: ABBVIE
  Company Number: EU-ABBVIE-6360284

PATIENT
  Sex: Female
  Weight: 3.1 kg

DRUGS (2)
  1. SKYRIZI [Suspect]
     Active Substance: RISANKIZUMAB-RZAA
     Indication: Exposure via body fluid
     Route: 064
  2. SKYRIZI [Suspect]
     Active Substance: RISANKIZUMAB-RZAA
     Route: 050

REACTIONS (4)
  - Infantile haemangioma [Unknown]
  - Haemangioma of skin [Unknown]
  - Foetal exposure during pregnancy [Unknown]
  - Paternal exposure during pregnancy [Unknown]
